FAERS Safety Report 17851832 (Version 2)
Quarter: 2020Q2

REPORT INFORMATION
  Report Type: Spontaneous
  Country: US (occurrence: US)
  Receive Date: 20200602
  Receipt Date: 20200629
  Transmission Date: 20200714
  Serious: No
  Sender: FDA-Public Use
  Company Number: US-PFIZER INC-2019-06476

PATIENT
  Age: 51 Year
  Sex: Female

DRUGS (10)
  1. MEKTOVI [Suspect]
     Active Substance: BINIMETINIB
     Indication: CONNECTIVE TISSUE NEOPLASM
     Dosage: 45 MG, 2X/DAY
     Route: 048
     Dates: start: 20191003
  2. BRAFTOVI [Suspect]
     Active Substance: ENCORAFENIB
     Indication: CONNECTIVE TISSUE NEOPLASM
     Dosage: 450 MG, 1X/DAY
     Route: 048
     Dates: start: 20191003
  3. BRAFTOVI [Suspect]
     Active Substance: ENCORAFENIB
     Dosage: 450 MG, 1X/DAY
     Route: 048
  4. MEKTOVI [Suspect]
     Active Substance: BINIMETINIB
     Dosage: 45 MG, 2X/DAY
     Route: 048
  5. BRAFTOVI [Suspect]
     Active Substance: ENCORAFENIB
     Dosage: 450 MG, 1X/DAY
     Route: 048
     Dates: start: 20190927
  6. MEKTOVI [Suspect]
     Active Substance: BINIMETINIB
     Dosage: 45 MG, 2X/DAY
     Route: 048
  7. BRAFTOVI [Suspect]
     Active Substance: ENCORAFENIB
     Dosage: 450 MG, 1X/DAY
     Route: 048
  8. MEKTOVI [Suspect]
     Active Substance: BINIMETINIB
     Dosage: 45 MG, 2X/DAY
     Route: 048
  9. MEKTOVI [Suspect]
     Active Substance: BINIMETINIB
     Dosage: 45 MG, 1X/DAY
     Route: 048
     Dates: start: 20190927
  10. BRAFTOVI [Suspect]
     Active Substance: ENCORAFENIB
     Dosage: 450 MG, 1X/DAY
     Route: 048

REACTIONS (7)
  - Product use in unapproved indication [Unknown]
  - Pruritus [Unknown]
  - Arthralgia [Unknown]
  - Off label use [Unknown]
  - Constipation [Unknown]
  - Migraine [Unknown]
  - Nausea [Unknown]

NARRATIVE: CASE EVENT DATE: 20191224
